FAERS Safety Report 20638711 (Version 1)
Quarter: 2022Q1

REPORT INFORMATION
  Report Type: Spontaneous
  Country: US (occurrence: US)
  Receive Date: 20220325
  Receipt Date: 20220325
  Transmission Date: 20220424
  Serious: Yes (Other)
  Sender: FDA-Public Use
  Company Number: US-HLS-202200280

PATIENT
  Age: 23 Year
  Sex: Male

DRUGS (2)
  1. CLOZAPINE [Suspect]
     Active Substance: CLOZAPINE
     Indication: Schizophrenia
     Dosage: AT NIGHT, AND TITRATED 12.5 MG WEEKLY, AND THEN 325MG DAILY THEN TITRATED UPTO 600MG NIGHTLY.
     Route: 065
  2. CLOZAPINE [Suspect]
     Active Substance: CLOZAPINE
     Indication: Schizophrenia
     Route: 065

REACTIONS (10)
  - Tachycardia [Recovered/Resolved]
  - Intentional self-injury [Recovered/Resolved]
  - Cardiotoxicity [Recovered/Resolved]
  - Myocarditis [Recovered/Resolved]
  - C-reactive protein increased [Recovered/Resolved]
  - Hyperhidrosis [Recovered/Resolved]
  - Electrocardiogram abnormal [Recovered/Resolved]
  - Psychotic symptom [Recovered/Resolved]
  - Pericarditis [Recovered/Resolved]
  - Troponin increased [Recovered/Resolved]
